FAERS Safety Report 7261578-6 (Version None)
Quarter: 2011Q1

REPORT INFORMATION
  Report Type: 
  Country: None (occurrence: None)
  Receive Date: 20110130
  Receipt Date: 20101022
  Transmission Date: 20110831
  Serious: No
  Sender: FDA-Public Use
  Company Number: US-ABBOTT-10P-163-0680506-00

PATIENT
  Sex: Female

DRUGS (3)
  1. ASACOL [Concomitant]
     Indication: CROHN'S DISEASE
     Dosage: 2 IN AM AND 2 IN PM
  2. HUMIRA [Suspect]
     Indication: CROHN'S DISEASE
     Dosage: ONLY HAD INITIAL LOADING DOSE OF 4 PENS
     Dates: start: 20101014
  3. PREDNISONE [Concomitant]
     Indication: CROHN'S DISEASE

REACTIONS (2)
  - HEADACHE [None]
  - INJECTION SITE PAIN [None]
